FAERS Safety Report 7474552-1 (Version None)
Quarter: 2011Q1

REPORT INFORMATION
  Report Type: 
  Country: None (occurrence: None)
  Receive Date: 20110302
  Receipt Date: 20100713
  Transmission Date: 20110831
  Serious: Yes (Other)
  Sender: FDA-Public Use
  Company Number: 163-21880-10071280

PATIENT
  Age: 80 Year
  Sex: Male

DRUGS (2)
  1. BLOOD TRANSFUSION [Concomitant]
  2. REVLIMID [Suspect]
     Indication: MYELODYSPLASTIC SYNDROME
     Dosage: 10 MG, QD X 3 WEEKS ON + 1 WEEK OFF, PO
     Route: 048
     Dates: start: 20100614

REACTIONS (1)
  - CARDIAC DISORDER [None]
